FAERS Safety Report 12270304 (Version 1)
Quarter: 2016Q2

REPORT INFORMATION
  Report Type: Spontaneous
  Country: IN (occurrence: IN)
  Receive Date: 20160415
  Receipt Date: 20160415
  Transmission Date: 20160815
  Serious: Yes (Other)
  Sender: FDA-Public Use
  Company Number: IN-SUN PHARMACEUTICAL INDUSTRIES LTD-2014SUN02746

PATIENT

DRUGS (7)
  1. CALCIUM [Suspect]
     Active Substance: CALCIUM
     Indication: PRODUCT USED FOR UNKNOWN INDICATION
     Dosage: 500 MG, ONE TABLET PER DAY
     Route: 065
  2. SYCAPONE 150 [Suspect]
     Active Substance: CARBIDOPA\ENTACAPONE\LEVODOPA
     Indication: PARKINSON^S DISEASE
     Dosage: 150 MG, 1/2 TAB EVERY 2/3 HRS 6 TIMES A DAY
     Route: 048
     Dates: start: 2010
  3. RAMITAX [Concomitant]
     Dosage: ONCE A DAY
  4. PRAMIPEX [Suspect]
     Active Substance: PRAMIPEXOLE DIHYDROCHLORIDE
     Indication: PRODUCT USED FOR UNKNOWN INDICATION
     Dosage: 1 MG, UNK
     Route: 065
  5. SYCAPONE 150 [Suspect]
     Active Substance: CARBIDOPA\ENTACAPONE\LEVODOPA
     Dosage: 1/2 TAB. EVERY HALF AN HOUR/ 6 TIMES A DAY
     Route: 048
     Dates: start: 20120102, end: 20160316
  6. REPACE [Concomitant]
     Dosage: ONCE A DAY
  7. RASALECT [Suspect]
     Active Substance: RASAGILINE
     Indication: PRODUCT USED FOR UNKNOWN INDICATION
     Route: 065

REACTIONS (8)
  - Restlessness [Unknown]
  - Speech disorder [Unknown]
  - Nervous system disorder [Unknown]
  - Dyspnoea [Unknown]
  - Product physical issue [Unknown]
  - Drooling [Unknown]
  - Depressed mood [Unknown]
  - Neuralgia [Unknown]
